FAERS Safety Report 5398891-3 (Version None)
Quarter: 2007Q3

REPORT INFORMATION
  Report Type: 
  Country: None (occurrence: None)
  Receive Date: 20070727
  Receipt Date: 20070717
  Transmission Date: 20080115
  Serious: Yes (Hospitalization)
  Sender: FDA-Public Use
  Company Number: PHHO2007US07785

PATIENT
  Age: 59 Year
  Sex: Female
  Weight: 83.446 kg

DRUGS (3)
  1. MYFORTIC [Suspect]
     Indication: TRANSPLANT
     Dosage: 720 MG, BID
     Route: 048
     Dates: start: 20060131
  2. NEORAL [Suspect]
     Indication: TRANSPLANT
     Dosage: 125 MG DAILY
     Route: 048
  3. NEORAL [Suspect]
     Dosage: 100 MG, BID
     Dates: start: 20010102

REACTIONS (11)
  - BLOOD CREATININE INCREASED [None]
  - DUODENAL ULCER [None]
  - DUODENITIS [None]
  - GASTRITIS EROSIVE [None]
  - GASTRITIS HAEMORRHAGIC [None]
  - HELICOBACTER GASTRITIS [None]
  - KIDNEY TRANSPLANT REJECTION [None]
  - NAUSEA [None]
  - OESOPHAGEAL ULCER [None]
  - REFLUX OESOPHAGITIS [None]
  - VOMITING [None]
